FAERS Safety Report 6044479-0 (Version None)
Quarter: 2009Q1

REPORT INFORMATION
  Report Type: 
  Country: None (occurrence: None)
  Receive Date: 20090120
  Receipt Date: 20090114
  Transmission Date: 20090719
  Serious: Yes (Other)
  Sender: FDA-Public Use
  Company Number: IN-ASTRAZENECA-2009AC00359

PATIENT
  Age: 19 Year
  Sex: Female

DRUGS (4)
  1. QUETIAPINE FUMARATE [Suspect]
     Indication: MANIA
     Dosage: GRADUALLY INCREASED TO 300 MG DAILY OVER 1 WEEK
  2. QUETIAPINE FUMARATE [Suspect]
  3. QUETIAPINE FUMARATE [Suspect]
  4. LORAZEPAM [Concomitant]
     Indication: MANIA

REACTIONS (1)
  - MYOCLONUS [None]
